FAERS Safety Report 7806846-1 (Version None)
Quarter: 2011Q4

REPORT INFORMATION
  Report Type: 
  Country: None (occurrence: None)
  Receive Date: 20111011
  Receipt Date: 20111004
  Transmission Date: 20120403
  Serious: Yes (Other)
  Sender: FDA-Public Use
  Company Number: US-PFIZER INC-2011217310

PATIENT
  Sex: Female

DRUGS (2)
  1. LYRICA [Suspect]
     Dosage: 300 MG, UNK
  2. LYRICA [Suspect]
     Dosage: 150 MG, UNK

REACTIONS (4)
  - FOOT FRACTURE [None]
  - FALL [None]
  - BLOOD GLUCOSE DECREASED [None]
  - DISORIENTATION [None]
